FAERS Safety Report 14234001 (Version 1)
Quarter: 2017Q4

REPORT INFORMATION
  Report Type: Spontaneous
  Country: US (occurrence: US)
  Receive Date: 20171129
  Receipt Date: 20171129
  Transmission Date: 20180321
  Serious: No
  Sender: FDA-Public Use
  Company Number: US-JNJFOC-20171105399

PATIENT
  Age: 76 Year
  Sex: Male

DRUGS (2)
  1. TYLENOL ARTHRITIS PAIN [Suspect]
     Active Substance: ACETAMINOPHEN
     Indication: ARTHRALGIA
     Route: 065
  2. TYLENOL ARTHRITIS PAIN [Suspect]
     Active Substance: ACETAMINOPHEN
     Route: 065

REACTIONS (3)
  - Dyspnoea [Unknown]
  - Drug ineffective [Unknown]
  - Pain [Unknown]
